FAERS Safety Report 5215077-3 (Version None)
Quarter: 2007Q1

REPORT INFORMATION
  Report Type: 
  Country: None (occurrence: None)
  Receive Date: 20070122
  Receipt Date: 20070110
  Transmission Date: 20070707
  Serious: Yes (Hospitalization)
  Sender: FDA-Public Use
  Company Number: JP-PFIZER INC-2006155025

PATIENT
  Sex: Female
  Weight: 46 kg

DRUGS (1)
  1. ZITHROMAC [Suspect]
     Indication: GYNAECOLOGICAL CHLAMYDIA INFECTION
     Route: 048
     Dates: start: 20061216, end: 20061216

REACTIONS (3)
  - ABDOMINAL PAIN [None]
  - DIARRHOEA HAEMORRHAGIC [None]
  - VOMITING [None]
